FAERS Safety Report 8576255-9 (Version None)
Quarter: 2012Q3

REPORT INFORMATION
  Report Type: 
  Country: None (occurrence: None)
  Receive Date: 20120807
  Receipt Date: 20120802
  Transmission Date: 20120928
  Serious: Yes (Other)
  Sender: FDA-Public Use
  Company Number: HR-ABBOTT-12P-216-0964603-00

PATIENT
  Age: 58 Year
  Sex: Female

DRUGS (4)
  1. GLUFORMIN [Concomitant]
     Indication: DIABETES MELLITUS
     Route: 048
  2. INDOMETHACIN [Concomitant]
     Indication: PSORIATIC ARTHROPATHY
     Route: 048
     Dates: start: 20100101
  3. HUMIRA [Suspect]
     Indication: PSORIATIC ARTHROPATHY
     Route: 058
     Dates: start: 20120501, end: 20120601
  4. PREDNISONE TAB [Concomitant]
     Indication: PSORIATIC ARTHROPATHY
     Dates: start: 20100101

REACTIONS (13)
  - LOSS OF CONSCIOUSNESS [None]
  - PALPITATIONS [None]
  - PYREXIA [None]
  - HYPERHIDROSIS [None]
  - BLOOD PRESSURE INCREASED [None]
  - VOMITING [None]
  - CHEST DISCOMFORT [None]
  - NAUSEA [None]
  - DIARRHOEA [None]
  - HEADACHE [None]
  - VERTIGO [None]
  - CHILLS [None]
  - ASTHENIA [None]
